FAERS Safety Report 16784494 (Version 1)
Quarter: 2019Q3

REPORT INFORMATION
  Report Type: Spontaneous
  Country: JP (occurrence: JP)
  Receive Date: 20190909
  Receipt Date: 20190909
  Transmission Date: 20191005
  Serious: Yes (Life-Threatening, Other)
  Sender: FDA-Public Use
  Company Number: JP-SA-2019SA237017

PATIENT
  Age: 59 Year
  Sex: Male

DRUGS (3)
  1. FLUOROURACIL. [Suspect]
     Active Substance: FLUOROURACIL
     Indication: SALIVARY GLAND CANCER
     Dosage: 700 MG/M2, QCY (ON DAYS 2-5, 28?DAY CYCLE.)
  2. CISPLATIN. [Suspect]
     Active Substance: CISPLATIN
     Indication: SALIVARY GLAND CANCER
     Dosage: 60 MG/M2, QCY (ON DAY 1, 28?DAY CYCLE.)
  3. DOCETAXEL. [Suspect]
     Active Substance: DOCETAXEL
     Indication: SALIVARY GLAND CANCER
     Dosage: 60 MG/M2, QCY (ON DAY 1, 28?DAY CYCLE)

REACTIONS (2)
  - Treatment failure [Recovering/Resolving]
  - Salivary gland cancer [Recovering/Resolving]
